FAERS Safety Report 7308066-6 (Version None)
Quarter: 2011Q1

REPORT INFORMATION
  Report Type: 
  Country: None (occurrence: None)
  Receive Date: 20110223
  Receipt Date: 20101119
  Transmission Date: 20110831
  Serious: No
  Sender: FDA-Public Use
  Company Number: US-BAYER-2010-006284

PATIENT
  Sex: Female

DRUGS (1)
  1. MIRENA [Suspect]
     Dosage: 20 ?G/D, CONT
     Route: 015
     Dates: start: 20070101

REACTIONS (6)
  - MENSTRUATION DELAYED [None]
  - AMENORRHOEA [None]
  - BREAST SWELLING [None]
  - HYPOMENORRHOEA [None]
  - MUSCLE SPASMS [None]
  - BREAST TENDERNESS [None]
